FAERS Safety Report 9711541 (Version 1)
Quarter: 2013Q4

REPORT INFORMATION
  Report Type: Spontaneous
  Country: US (occurrence: US)
  Receive Date: 20131126
  Receipt Date: 20131126
  Transmission Date: 20140711
  Serious: No
  Sender: FDA-Public Use
  Company Number: US-BRISTOL-MYERS SQUIBB COMPANY-19074376

PATIENT
  Age: 74 Year
  Sex: Female
  Weight: 79.36 kg

DRUGS (10)
  1. BYDUREON 2MG SUSPENSION [Suspect]
     Indication: TYPE 2 DIABETES MELLITUS
     Route: 058
  2. VERAPAMIL [Concomitant]
  3. LOSARTAN [Concomitant]
  4. GLUCOPHAGE [Concomitant]
  5. GLYBURIDE [Concomitant]
  6. LASIX [Concomitant]
  7. LABETALOL [Concomitant]
  8. LEVOXYL [Concomitant]
  9. POTASSIUM CHLORIDE [Concomitant]
  10. VITAMIN D [Concomitant]

REACTIONS (3)
  - Accidental overdose [Unknown]
  - Product quality issue [Unknown]
  - Weight decreased [Unknown]
